FAERS Safety Report 9525540 (Version 1)
Quarter: 2013Q3

REPORT INFORMATION
  Report Type: Spontaneous
  Country: US (occurrence: None)
  Receive Date: 20130913
  Receipt Date: 20130913
  Transmission Date: 20140515
  Serious: Yes (Other)
  Sender: FDA-Public Use
  Company Number: None

PATIENT
  Age: 81 Year
  Sex: Female

DRUGS (1)
  1. XEOMIN [Suspect]
     Indication: FACIAL SPASM
     Dates: start: 20130912, end: 20130912

REACTIONS (3)
  - Injection site pain [None]
  - Injection site pain [None]
  - Product quality issue [None]
